FAERS Safety Report 20919414 (Version 2)
Quarter: 2022Q2

REPORT INFORMATION
  Report Type: Spontaneous
  Country: US (occurrence: US)
  Receive Date: 20220606
  Receipt Date: 20220615
  Transmission Date: 20220721
  Serious: No
  Sender: FDA-Public Use
  Company Number: US-BAYER-2022A077373

PATIENT
  Age: 17 Year
  Sex: Male

DRUGS (3)
  1. JIVI [Suspect]
     Active Substance: DAMOCTOCOG ALFA PEGOL
     Dosage: 1500 IU, PRN, MINOR
  2. JIVI [Suspect]
     Active Substance: DAMOCTOCOG ALFA PEGOL
     Dosage: 3000 IU, PRN, MAJOR BLEED
  3. JIVI [Suspect]
     Active Substance: DAMOCTOCOG ALFA PEGOL
     Dosage: 5 DF, FOR THE MUSCLE INJURY TREATMENT

REACTIONS (1)
  - Muscle injury [None]

NARRATIVE: CASE EVENT DATE: 20220506
